FAERS Safety Report 4441062-5 (Version None)
Quarter: 2004Q3

REPORT INFORMATION
  Report Type: 
  Country: None (occurrence: None)
  Receive Date: 20040830
  Receipt Date: 20040830
  Transmission Date: 20050211
  Serious: No
  Sender: FDA-Public Use
  Company Number: MK200311-0073-1

PATIENT
  Age: 24 Year
  Sex: Female

DRUGS (1)
  1. TECHNESCAN MAG3 [Suspect]
     Indication: RENAL SCAN
     Dosage: 10.3 MCI, ONCE
     Dates: start: 20031107, end: 20031107

REACTIONS (1)
  - CEREBROVASCULAR ACCIDENT [None]
